FAERS Safety Report 4771953-7 (Version None)
Quarter: 2005Q3

REPORT INFORMATION
  Report Type: 
  Country: None (occurrence: None)
  Receive Date: 20050916
  Receipt Date: 20050113
  Transmission Date: 20060218
  Serious: Yes (Hospitalization)
  Sender: FDA-Public Use
  Company Number: US-BRISTOL-MYERS SQUIBB COMPANY-12825451

PATIENT
  Age: 62 Year
  Sex: Male

DRUGS (6)
  1. CETUXIMAB [Suspect]
     Indication: NON-SMALL CELL LUNG CANCER
     Dosage: INITIAL TX DATE WAS 08-DEC-04. PT HAD REC'D 2 COURSES PRIOR TO EVENT.
     Route: 042
     Dates: start: 20050106, end: 20050106
  2. CARBOPLATIN [Suspect]
     Indication: NON-SMALL CELL LUNG CANCER
     Dosage: INITIAL TX DATE WAS 08-DEC-04. PT HAD REC'D 2 COURSES PRIOR TO EVENT.
     Route: 042
     Dates: start: 20050106, end: 20050106
  3. TAXOTERE [Suspect]
     Indication: NON-SMALL CELL LUNG CANCER
     Dosage: INITIAL TX DATE WAS 08-DEC-04. PT HAD REC'D 2 COURSES PRIOR TO EVENT. DOSE DELAYED/OMITTED.
     Route: 042
     Dates: start: 20050106, end: 20050106
  4. MS CONTIN [Concomitant]
     Dates: start: 20041208
  5. ACYCLOVIR [Concomitant]
     Dates: start: 20041223
  6. NORVASC [Concomitant]

REACTIONS (12)
  - ANAEMIA [None]
  - ANXIETY [None]
  - ECHOCARDIOGRAM ABNORMAL [None]
  - NEUTROPENIA [None]
  - OCCULT BLOOD POSITIVE [None]
  - PLEURAL EFFUSION [None]
  - PLEURISY [None]
  - PRODUCTIVE COUGH [None]
  - PYREXIA [None]
  - RESPIRATORY RATE INCREASED [None]
  - SINUS TACHYCARDIA [None]
  - STAPHYLOCOCCAL INFECTION [None]
